FAERS Safety Report 4421543-0 (Version None)
Quarter: 2004Q3

REPORT INFORMATION
  Report Type: 
  Country: None (occurrence: None)
  Receive Date: 20040804
  Receipt Date: 20040727
  Transmission Date: 20050211
  Serious: Yes (Hospitalization)
  Sender: FDA-Public Use
  Company Number: A02200402254

PATIENT
  Age: 81 Year
  Sex: Male

DRUGS (7)
  1. STILNOX - (ZOLPIDEM) - TABLET - 10 MG / TABLET - 10 MG [Suspect]
     Indication: SUICIDE ATTEMPT
     Dosage: 280 MG ONCE
     Route: 048
     Dates: end: 20040714
  2. STILNOX - (ZOLPIDEM) - TABLET - 10 MG / TABLET - 10 MG [Suspect]
     Indication: SUICIDE ATTEMPT
     Dosage: 280 MG ONCE
     Route: 048
     Dates: start: 20040715, end: 20040715
  3. PLAVIX [Suspect]
     Indication: SUICIDE ATTEMPT
     Dosage: 3150 MG ONCE
     Route: 048
     Dates: end: 20040714
  4. PLAVIX [Suspect]
     Indication: SUICIDE ATTEMPT
     Dosage: 3150 MG ONCE
     Route: 048
     Dates: start: 20040715, end: 20040715
  5. EFFEXOR [Concomitant]
  6. BEFIZAL (BEZAFIBRATE) [Concomitant]
  7. MODOPAR (LEVODOPA/BENSERAZIDE) [Concomitant]

REACTIONS (3)
  - MULTIPLE DRUG OVERDOSE INTENTIONAL [None]
  - SOMNOLENCE [None]
  - SUICIDE ATTEMPT [None]
